FAERS Safety Report 15225160 (Version 2)
Quarter: 2018Q3

REPORT INFORMATION
  Report Type: Spontaneous
  Country: RO (occurrence: RO)
  Receive Date: 20180801
  Receipt Date: 20180823
  Transmission Date: 20181010
  Serious: Yes (Life-Threatening, Hospitalization, Other)
  Sender: FDA-Public Use
  Company Number: RO-TORRENT-00000047

PATIENT
  Age: 35 Year
  Sex: Female

DRUGS (3)
  1. PARACETAMOL [Suspect]
     Active Substance: ACETAMINOPHEN
     Indication: NASOPHARYNGITIS
     Dosage: 500 MG, UNK
  2. ESOMEPRAZOLE MAGNESIUM. [Suspect]
     Active Substance: ESOMEPRAZOLE MAGNESIUM
     Indication: CHRONIC GASTRITIS
     Dosage: 20 MG, DAILY
     Route: 065
  3. IBUPROFEN. [Suspect]
     Active Substance: IBUPROFEN
     Indication: DYSMENORRHOEA
     Dosage: 200 MG, SINGLE
     Route: 048

REACTIONS (14)
  - Urticaria [Not Recovered/Not Resolved]
  - Loss of consciousness [Recovered/Resolved]
  - Wheezing [Not Recovered/Not Resolved]
  - Urinary incontinence [Recovered/Resolved]
  - Pruritus [Not Recovered/Not Resolved]
  - Type I hypersensitivity [Recovered/Resolved]
  - Sneezing [Not Recovered/Not Resolved]
  - Angioedema [Not Recovered/Not Resolved]
  - Anaphylactic reaction [Not Recovered/Not Resolved]
  - Abdominal pain [Recovered/Resolved]
  - Dyspnoea [Not Recovered/Not Resolved]
  - Rash pruritic [Recovered/Resolved]
  - Pruritus allergic [Unknown]
  - Hypersensitivity [Recovered/Resolved]
